FAERS Safety Report 8258340-4 (Version None)
Quarter: 2012Q2

REPORT INFORMATION
  Report Type: 
  Country: None (occurrence: None)
  Receive Date: 20120404
  Receipt Date: 20120328
  Transmission Date: 20120825
  Serious: Yes (Hospitalization, Other)
  Sender: FDA-Public Use
  Company Number: US-ABBOTT-12P-163-0919596-00

PATIENT
  Sex: Female

DRUGS (1)
  1. HUMIRA [Suspect]
     Indication: RHEUMATOID ARTHRITIS
     Route: 050
     Dates: start: 20110301

REACTIONS (5)
  - HERNIA [None]
  - ABSCESS [None]
  - CLOSTRIDIAL INFECTION [None]
  - GASTRIC BYPASS [None]
  - DEHYDRATION [None]
